FAERS Safety Report 15838060 (Version 1)
Quarter: 2019Q1

REPORT INFORMATION
  Report Type: Spontaneous
  Country: CH (occurrence: CH)
  Receive Date: 20190117
  Receipt Date: 20190117
  Transmission Date: 20190417
  Serious: Yes (Death)
  Sender: FDA-Public Use
  Company Number: CH-PURACAP PHARMACEUTICAL LLC-2019EPC00005

PATIENT
  Age: 78 Year
  Sex: Female

DRUGS (2)
  1. ALLOPURINOL. [Suspect]
     Active Substance: ALLOPURINOL
     Indication: HYPERURICAEMIA
     Route: 065
  2. LOSARTAN. [Concomitant]
     Active Substance: LOSARTAN
     Indication: HYPERTENSION
     Route: 065

REACTIONS (5)
  - Thrombotic microangiopathy [Fatal]
  - Drug reaction with eosinophilia and systemic symptoms [Fatal]
  - Papillary muscle rupture [Fatal]
  - Cardiac failure acute [Fatal]
  - Eosinophilic myocarditis [Fatal]
